FAERS Safety Report 8506920-0 (Version None)
Quarter: 2012Q3

REPORT INFORMATION
  Report Type: 
  Country: None (occurrence: None)
  Receive Date: 20120712
  Receipt Date: 20120704
  Transmission Date: 20120928
  Serious: Yes (Hospitalization, Other)
  Sender: FDA-Public Use
  Company Number: DE-JNJFOC-20120503419

PATIENT
  Sex: Female
  Weight: 74 kg

DRUGS (11)
  1. LEVOTHYROXINE SODIUM [Concomitant]
  2. AMLODIPINE [Concomitant]
  3. ACETYLCYSTEINE [Concomitant]
  4. RAMIPRIL [Concomitant]
  5. LOPRESSOR [Concomitant]
  6. XARELTO [Suspect]
     Indication: ATRIAL FIBRILLATION
     Route: 048
     Dates: start: 20120208
  7. PANTOPRAZOLE [Concomitant]
  8. LEVOFLOXACIN [Concomitant]
  9. XARELTO [Suspect]
     Indication: CEREBROVASCULAR ACCIDENT
     Route: 048
     Dates: start: 20120208
  10. IBUPROFEN [Concomitant]
  11. TORSEMIDE [Concomitant]

REACTIONS (3)
  - LOWER GASTROINTESTINAL HAEMORRHAGE [None]
  - HYPERTENSION [None]
  - CEREBROVASCULAR ACCIDENT [None]
